FAERS Safety Report 4698511-7 (Version None)
Quarter: 2005Q2

REPORT INFORMATION
  Report Type: 
  Country: None (occurrence: None)
  Receive Date: 20050621
  Receipt Date: 20050603
  Transmission Date: 20051028
  Serious: Yes (Other)
  Sender: FDA-Public Use
  Company Number: FR_050606582

PATIENT
  Age: 65 Year
  Sex: Male

DRUGS (4)
  1. CIALIS [Suspect]
     Dosage: 20 MG AS NEEDED
  2. ZOCOR [Concomitant]
  3. GLUCOPHAGE (METFORMIN /00082701/) [Concomitant]
  4. ASPEGIC 325 [Concomitant]

REACTIONS (3)
  - EMBOLISM [None]
  - PYREXIA [None]
  - VISUAL ACUITY REDUCED [None]
